FAERS Safety Report 8046670-0 (Version None)
Quarter: 2012Q1

REPORT INFORMATION
  Report Type: 
  Country: None (occurrence: None)
  Receive Date: 20120115
  Receipt Date: 20120102
  Transmission Date: 20120608
  Serious: Yes (Death, Hospitalization)
  Sender: FDA-Public Use
  Company Number: US-BAYER-2012-001092

PATIENT
  Age: 17 Year
  Sex: Female

DRUGS (3)
  1. ZIPRASIDONE HYDROCHLORIDE [Concomitant]
  2. ALPRAZOLAM [Concomitant]
  3. PARACETAMOL + DIPHENHYDRAMINE [Suspect]
     Route: 048

REACTIONS (8)
  - BRAIN HERNIATION [None]
  - HYPOTENSION [None]
  - DYSARTHRIA [None]
  - ATELECTASIS [None]
  - HYPOXIC-ISCHAEMIC ENCEPHALOPATHY [None]
  - CONVULSION [None]
  - PARALYSIS [None]
  - DELIRIUM [None]
